FAERS Safety Report 8461334-7 (Version None)
Quarter: 2012Q2

REPORT INFORMATION
  Report Type: 
  Country: None (occurrence: None)
  Receive Date: 20120625
  Receipt Date: 20120613
  Transmission Date: 20120825
  Serious: Yes (Hospitalization, Other)
  Sender: FDA-Public Use
  Company Number: US-JNJFOC-20120606988

PATIENT
  Age: 35 Year
  Sex: Female
  Weight: 95.26 kg

DRUGS (6)
  1. REMICADE [Suspect]
     Indication: CROHN'S DISEASE
     Route: 042
  2. REMICADE [Suspect]
     Route: 042
     Dates: start: 20111201
  3. TAGAMET [Concomitant]
     Indication: PREMEDICATION
     Route: 065
  4. SOLU-MEDROL [Concomitant]
     Indication: PREMEDICATION
     Route: 065
  5. BENADRYL [Concomitant]
     Indication: PREMEDICATION
     Route: 065
  6. ASPIRIN [Concomitant]
     Indication: PREMEDICATION
     Route: 065

REACTIONS (7)
  - HOT FLUSH [None]
  - TYPE IV HYPERSENSITIVITY REACTION [None]
  - INFUSION RELATED REACTION [None]
  - ADVERSE REACTION [None]
  - AUTONOMIC NERVOUS SYSTEM IMBALANCE [None]
  - CROHN'S DISEASE [None]
  - SERUM SICKNESS-LIKE REACTION [None]
